FAERS Safety Report 8254605-0 (Version None)
Quarter: 2012Q1

REPORT INFORMATION
  Report Type: 
  Country: None (occurrence: None)
  Receive Date: 20120329
  Receipt Date: 20120316
  Transmission Date: 20120608
  Serious: Yes (Hospitalization)
  Sender: FDA-Public Use
  Company Number: JPI-P-020248

PATIENT
  Age: 22 Year
  Sex: Female
  Weight: 52.1637 kg

DRUGS (6)
  1. MODAFINIL [Suspect]
     Indication: NARCOLEPSY
     Dosage: 150;250  MG, 1 D
     Dates: start: 20120201, end: 20120310
  2. MODAFINIL [Suspect]
     Indication: NARCOLEPSY
     Dosage: 150;250  MG, 1 D
     Dates: start: 20120311, end: 20120311
  3. LEVONORGESTREL [Concomitant]
  4. AMITRIPTYLINE HYDROCHLORIDE [Concomitant]
  5. XYREM [Suspect]
     Indication: CATAPLEXY
     Dosage: 4.5 GM (2.25 GM, 2 IN 1 D), ORAL
     Route: 048
     Dates: start: 20120305, end: 20120312
  6. SERTRALINE HYDROCHLORIDE [Concomitant]

REACTIONS (7)
  - GALLBLADDER DISORDER [None]
  - SOMNOLENCE [None]
  - ABDOMINAL PAIN [None]
  - FEELING DRUNK [None]
  - DIZZINESS [None]
  - VOMITING [None]
  - RETCHING [None]
